FAERS Safety Report 13319882 (Version 1)
Quarter: 2017Q1

REPORT INFORMATION
  Report Type: Spontaneous
  Country: AU (occurrence: AU)
  Receive Date: 20170309
  Receipt Date: 20170309
  Transmission Date: 20170428
  Serious: Yes (Other)
  Sender: FDA-Public Use
  Company Number: AU-009507513-1703AUS003258

PATIENT
  Age: 7 Year
  Weight: 26 kg

DRUGS (2)
  1. SINGULAIR [Suspect]
     Active Substance: MONTELUKAST SODIUM
     Dosage: 5 MILLIGRAM DAILY
     Dates: start: 20140802, end: 20140812
  2. FLIXOTIDE [Concomitant]
     Active Substance: FLUTICASONE PROPIONATE

REACTIONS (7)
  - Anxiety [Recovered/Resolved with Sequelae]
  - Suicidal ideation [Recovered/Resolved with Sequelae]
  - Personality disorder [Recovered/Resolved with Sequelae]
  - Emotional distress [Recovered/Resolved with Sequelae]
  - Enuresis [Recovered/Resolved with Sequelae]
  - Sleep terror [Recovered/Resolved with Sequelae]
  - Obsessive-compulsive symptom [Recovered/Resolved with Sequelae]
